FAERS Safety Report 18744520 (Version 1)
Quarter: 2021Q1

REPORT INFORMATION
  Report Type: Report from Study
  Country: US (occurrence: US)
  Receive Date: 20210115
  Receipt Date: 20210115
  Transmission Date: 20210419
  Serious: Yes (Other)
  Sender: FDA-Public Use
  Company Number: US-TAKEDA-US202001409

PATIENT
  Age: 36 Year
  Sex: Female

DRUGS (1)
  1. HUMAN NORMAL IMMUNOGLOBULIN; LIQUID [Suspect]
     Active Substance: HUMAN IMMUNOGLOBULIN G
     Indication: PRIMARY IMMUNODEFICIENCY SYNDROME
     Dosage: 40 GRAM, UNKNOWN
     Route: 042

REACTIONS (7)
  - Respiratory disorder [Unknown]
  - Pyrexia [Unknown]
  - COVID-19 pneumonia [Recovered/Resolved]
  - Weight decreased [Unknown]
  - Alopecia [Unknown]
  - Dysphonia [Unknown]
  - Stress [Unknown]

NARRATIVE: CASE EVENT DATE: 20200113
